FAERS Safety Report 23745416 (Version 2)
Quarter: 2024Q2

REPORT INFORMATION
  Report Type: Other
  Country: AR (occurrence: None)
  Receive Date: 20240416
  Receipt Date: 20240610
  Transmission Date: 20240716
  Serious: Yes (Other)
  Sender: FDA-Public Use
  Company Number: AR-ROCHE-3539000

PATIENT
  Sex: Female

DRUGS (2)
  1. OCREVUS [Suspect]
     Active Substance: OCRELIZUMAB
     Indication: Multiple sclerosis
     Route: 065
     Dates: start: 20201203
  2. BACLOFEN [Concomitant]
     Active Substance: BACLOFEN

REACTIONS (15)
  - Asthenia [Not Recovered/Not Resolved]
  - Multiple sclerosis [Unknown]
  - Gait disturbance [Unknown]
  - Retinal injury [Unknown]
  - Serology positive [Unknown]
  - JC polyomavirus test positive [Unknown]
  - Genital hypoaesthesia [Unknown]
  - Fatigue [Not Recovered/Not Resolved]
  - Muscle spasticity [Unknown]
  - Motor dysfunction [Unknown]
  - Hypoaesthesia [Unknown]
  - Paraesthesia [Unknown]
  - Cerebral disorder [Unknown]
  - Hypovolaemia [Unknown]
  - Treatment failure [Unknown]

NARRATIVE: CASE EVENT DATE: 20210501
